FAERS Safety Report 4836044-5 (Version None)
Quarter: 2005Q4

REPORT INFORMATION
  Report Type: 
  Country: None (occurrence: None)
  Receive Date: 20051121
  Receipt Date: 20051121
  Transmission Date: 20060501
  Serious: Yes (Hospitalization, Disabling)
  Sender: FDA-Public Use
  Company Number: None

PATIENT
  Age: 48 Year
  Sex: Male
  Weight: 86.1834 kg

DRUGS (1)
  1. GLUCOPHAGE [Suspect]
     Indication: DIABETES MELLITUS NON-INSULIN-DEPENDENT
     Dosage: 500 MG BID PO [LAST DOSE 11/11]
     Route: 048
     Dates: end: 20051111

REACTIONS (9)
  - ASTHENIA [None]
  - BLOOD PH DECREASED [None]
  - CHEST DISCOMFORT [None]
  - DYSPNOEA [None]
  - LACTIC ACIDOSIS [None]
  - OEDEMA PERIPHERAL [None]
  - PAIN [None]
  - PRODUCTIVE COUGH [None]
  - RENAL FAILURE ACUTE [None]
